FAERS Safety Report 5003335-7 (Version None)
Quarter: 2006Q2

REPORT INFORMATION
  Report Type: 
  Country: None (occurrence: None)
  Receive Date: 20060511
  Receipt Date: 20060428
  Transmission Date: 20061013
  Serious: Yes (Disabling)
  Sender: FDA-Public Use
  Company Number: 2006059230

PATIENT
  Age: 78 Year
  Sex: Female
  Weight: 65 kg

DRUGS (7)
  1. METHYLPREDNISOLONE [Suspect]
     Indication: ROTATOR CUFF SYNDROME
     Dosage: SINGLE
     Dates: start: 20060411, end: 20060411
  2. CANDESARTAN (CANDESARTAN) [Concomitant]
  3. ATENOLOL [Concomitant]
  4. ASPIRIN [Concomitant]
  5. LEVOTHYROXINE SODIUM [Concomitant]
  6. ATORVASTATIN CALCIUM [Concomitant]
  7. FOLIC ACID [Concomitant]

REACTIONS (4)
  - ARTHROPATHY [None]
  - MOBILITY DECREASED [None]
  - PAIN IN EXTREMITY [None]
  - SHOULDER PAIN [None]
